FAERS Safety Report 6338122-0 (Version None)
Quarter: 2009Q3

REPORT INFORMATION
  Report Type: 
  Country: None (occurrence: None)
  Receive Date: 20090902
  Receipt Date: 20090820
  Transmission Date: 20100115
  Serious: Yes (Hospitalization, Other)
  Sender: FDA-Public Use
  Company Number: US-PFIZER INC-2009238343

PATIENT
  Age: 45 Year
  Sex: Female

DRUGS (1)
  1. NEURONTIN [Suspect]
     Indication: NERVE INJURY
     Dosage: UNK

REACTIONS (4)
  - ACTIVITIES OF DAILY LIVING IMPAIRED [None]
  - HALLUCINATION [None]
  - SPEECH DISORDER [None]
  - WITHDRAWAL SYNDROME [None]
